FAERS Safety Report 5909559-6 (Version None)
Quarter: 2008Q4

REPORT INFORMATION
  Report Type: 
  Country: None (occurrence: None)
  Receive Date: 20081002
  Receipt Date: 20080917
  Transmission Date: 20090506
  Serious: Yes (Hospitalization)
  Sender: FDA-Public Use
  Company Number: 2008S1017042

PATIENT
  Age: 88 Year
  Sex: Male

DRUGS (12)
  1. NITROGLYCERIN [Suspect]
     Indication: ANGINA PECTORIS
     Dosage: 0.4 MG;HR; TRANSDERMAL
     Route: 062
     Dates: start: 20080722, end: 20080814
  2. DIGOXIN [Concomitant]
  3. PROSCAR [Concomitant]
  4. LASIX [Concomitant]
  5. ISOSORBIDE [Concomitant]
  6. LISINOPRIL [Concomitant]
  7. METOPROLOL TARTRATE [Concomitant]
  8. PRILOSEC [Concomitant]
  9. POTASSIUM CHLORIDE [Concomitant]
  10. FLOMAX [Concomitant]
  11. EYE DROPS [Concomitant]
  12. LUMIGAN [Concomitant]

REACTIONS (4)
  - ABSCESS [None]
  - APPLICATION SITE CELLULITIS [None]
  - APPLICATION SITE INFECTION [None]
  - DRUG HYPERSENSITIVITY [None]
